FAERS Safety Report 10190430 (Version 2)
Quarter: 2014Q2

REPORT INFORMATION
  Report Type: Spontaneous
  Country: JP (occurrence: JP)
  Receive Date: 20140522
  Receipt Date: 20140530
  Transmission Date: 20141212
  Serious: Yes (Other)
  Sender: FDA-Public Use
  Company Number: JP-BAXTER-2014BAX025544

PATIENT
  Age: 69 Year
  Sex: Male

DRUGS (4)
  1. GAMMAGARD FOR INJECTION 2.5G [Suspect]
     Indication: PEMPHIGUS
     Route: 042
  2. GAMMAGARD FOR INJECTION 2.5G [Suspect]
     Indication: OFF LABEL USE
     Dosage: 6 COURSES
     Route: 065
  3. CICLOSPORIN [Concomitant]
     Indication: PRODUCT USED FOR UNKNOWN INDICATION
     Route: 048
  4. PREDNISOLONE [Concomitant]
     Indication: PRODUCT USED FOR UNKNOWN INDICATION
     Route: 048

REACTIONS (2)
  - Pulmonary tuberculosis [Unknown]
  - Condition aggravated [Recovering/Resolving]
